FAERS Safety Report 9573214 (Version 2)
Quarter: 2013Q4

REPORT INFORMATION
  Report Type: Spontaneous
  Country: US (occurrence: US)
  Receive Date: 20131001
  Receipt Date: 20131001
  Transmission Date: 20140711
  Serious: No
  Sender: FDA-Public Use
  Company Number: US-PURDUE-USA-2012-0081976

PATIENT
  Age: 80 Year
  Sex: Female
  Weight: 74.83 kg

DRUGS (2)
  1. BUTRANS [Suspect]
     Indication: PAIN
     Dosage: 10 MCG/HR, UNK
     Route: 062
     Dates: start: 2011
  2. BUTRANS [Suspect]
     Indication: MYALGIA
     Dosage: 5 MCG/HR, UNK
     Route: 062

REACTIONS (4)
  - Application site scab [Not Recovered/Not Resolved]
  - Application site burn [Not Recovered/Not Resolved]
  - Application site pruritus [Not Recovered/Not Resolved]
  - Extra dose administered [Not Recovered/Not Resolved]
